FAERS Safety Report 4536102-9 (Version None)
Quarter: 2004Q4

REPORT INFORMATION
  Report Type: 
  Country: None (occurrence: None)
  Receive Date: 20041220
  Receipt Date: 20041207
  Transmission Date: 20050328
  Serious: Yes (Death, Other)
  Sender: FDA-Public Use
  Company Number: 2004107519

PATIENT
  Sex: Male

DRUGS (2)
  1. LIPITOR [Suspect]
     Indication: ILL-DEFINED DISORDER
  2. ROFECOXIB [Suspect]
     Indication: ILL-DEFINED DISORDER

REACTIONS (2)
  - BLOOD CHOLESTEROL DECREASED [None]
  - MYOCARDIAL INFARCTION [None]
